FAERS Safety Report 9731584 (Version 7)
Quarter: 2014Q2

REPORT INFORMATION
  Report Type: Report from Study
  Country: HU (occurrence: HU)
  Receive Date: 20131205
  Receipt Date: 20140530
  Transmission Date: 20141212
  Serious: Yes (Death, Hospitalization)
  Sender: FDA-Public Use
  Company Number: HU-ROCHE-1309212

PATIENT
  Age: 75 Year
  Sex: Male
  Weight: 80 kg

DRUGS (11)
  1. RITUXIMAB [Suspect]
     Indication: NON-HODGKIN^S LYMPHOMA UNSPECIFIED HISTOLOGY INDOLENT
     Dosage: DATE OF MOST RECENT DOSE (500 ML VOLUME WITH DOSE CONCENTRATION OF 1.52 MG/ML) PRIOR TO NEURALGIA AN
     Route: 042
     Dates: start: 20130925
  2. BENDAMUSTINE [Suspect]
     Indication: NON-HODGKIN^S LYMPHOMA UNSPECIFIED HISTOLOGY INDOLENT
     Dosage: DATE OF MOST RECENT DOSE (182.7 MG) PRIOR TO NEURALGIA AND RESPIRATORY FAILURE: 25/OCT/2013.
     Route: 042
     Dates: start: 20130925
  3. PANTOPRAZOL [Concomitant]
     Indication: GASTRITIS EROSIVE
  4. ENALAPRIL [Concomitant]
     Indication: HYPERTENSION
  5. BISOPROLOL [Concomitant]
     Indication: CARDIOVASCULAR DISORDER
  6. BISOPROLOL [Concomitant]
     Indication: HYPERTENSION
  7. ACETYLSALICYLIC ACID [Concomitant]
     Indication: CARDIOVASCULAR DISORDER
  8. VERAPAMIL [Concomitant]
     Indication: HYPERTENSION
  9. PIRACETAM [Concomitant]
     Indication: CEREBROVASCULAR DISORDER
  10. PIRACETAM [Concomitant]
     Indication: ENCEPHALOPATHY
  11. THIAMAZOLE [Concomitant]
     Indication: HYPERTHYROIDISM

REACTIONS (2)
  - Respiratory failure [Fatal]
  - Polyneuropathy [Recovered/Resolved]
